FAERS Safety Report 8377872-1 (Version None)
Quarter: 2012Q2

REPORT INFORMATION
  Report Type: 
  Country: None (occurrence: None)
  Receive Date: 20120521
  Receipt Date: 20120507
  Transmission Date: 20120825
  Serious: Yes (Hospitalization, Other)
  Sender: FDA-Public Use
  Company Number: CIP11002977

PATIENT
  Age: 66 Year
  Sex: Female

DRUGS (21)
  1. FOSINOPRIL SODIUM [Concomitant]
  2. TRANSDERM SCOP [Concomitant]
  3. ACTONEL [Suspect]
     Indication: OSTEOPOROSIS
     Dosage: 35 MG, 1/WEEK, ORAL
     Route: 048
     Dates: start: 20060307, end: 20080501
  4. CALCITRIOL [Concomitant]
  5. HYDROCHLOROTHIAZIDE [Concomitant]
  6. GINKOBA (GINKGO BILOBA) [Concomitant]
  7. VITAMIN B-12 [Concomitant]
  8. LEVOTHYROXINE SODIUM [Concomitant]
  9. MULTIVITAMIN /01229101/ (VITAMINS NOS) [Concomitant]
  10. EPIPEN [Concomitant]
  11. ALENDRONATE SODIUM [Suspect]
     Indication: OSTEOPOROSIS
     Dosage: 70 MG, 1/WEEK, ORAL
     Route: 048
     Dates: start: 20080510, end: 20090101
  12. PREMPRO [Concomitant]
  13. CLARITIN /00917501/ (LORATADINE) [Concomitant]
  14. CALCIUM CARBONATE [Concomitant]
  15. VITAMIN C /00008001/ (ASCORBIC ACID) [Concomitant]
  16. FOSAMAX [Suspect]
     Indication: OSTEOPOROSIS
     Dosage: 70 MG, 1/WEEK, ORAL ; 1 DOSE DAILY, ORAL
     Route: 048
     Dates: start: 20010118, end: 20060101
  17. FOSAMAX [Suspect]
     Indication: OSTEOPOROSIS
     Dosage: 70 MG, 1/WEEK, ORAL ; 1 DOSE DAILY, ORAL
     Route: 048
     Dates: start: 20090101, end: 20091001
  18. FOSAMAX [Suspect]
     Indication: OSTEOPOROSIS
     Dosage: 70 MG, 1/WEEK, ORAL ; 1 DOSE DAILY, ORAL
     Route: 048
     Dates: start: 20000201, end: 20010101
  19. ALFALFA /01255601/ (MEDICAGO SATIVA) [Concomitant]
  20. ZINC (ZINC) [Concomitant]
  21. VITAMIN E /00110501/ (TOCOPHEROL) [Concomitant]

REACTIONS (9)
  - GAIT DISTURBANCE [None]
  - LOW TURNOVER OSTEOPATHY [None]
  - MOBILITY DECREASED [None]
  - FEMUR FRACTURE [None]
  - PAIN IN EXTREMITY [None]
  - PATHOLOGICAL FRACTURE [None]
  - STRESS FRACTURE [None]
  - FALL [None]
  - BONE DISORDER [None]
